FAERS Safety Report 17350211 (Version 1)
Quarter: 2020Q1

REPORT INFORMATION
  Report Type: Spontaneous
  Country: US (occurrence: US)
  Receive Date: 20200130
  Receipt Date: 20200130
  Transmission Date: 20200409
  Serious: Yes (Other)
  Sender: FDA-Public Use
  Company Number: NVSC2020US023100

PATIENT
  Age: 46 Year
  Sex: Female

DRUGS (1)
  1. HALOPERIDOL. [Suspect]
     Active Substance: HALOPERIDOL
     Indication: PSYCHOTIC DISORDER
     Dosage: UNK
     Route: 065

REACTIONS (1)
  - Embolism venous [Unknown]
